FAERS Safety Report 6263155-2 (Version None)
Quarter: 2009Q3

REPORT INFORMATION
  Report Type: 
  Country: None (occurrence: None)
  Receive Date: 20090708
  Receipt Date: 20090708
  Transmission Date: 20100115
  Serious: No
  Sender: FDA-Public Use
  Company Number: None

PATIENT
  Sex: Female
  Weight: 72.5755 kg

DRUGS (1)
  1. NASONEX [Suspect]
     Indication: SINUS DISORDER
     Dosage: 2 SPRAYS IN EACH NOSTRIL DAILY
     Dates: start: 20090504, end: 20090529

REACTIONS (3)
  - BLADDER DISORDER [None]
  - POLLAKIURIA [None]
  - VULVOVAGINAL MYCOTIC INFECTION [None]
